FAERS Safety Report 10238783 (Version 2)
Quarter: 2015Q2

REPORT INFORMATION
  Report Type: Spontaneous
  Country: FR (occurrence: FR)
  Receive Date: 20140616
  Receipt Date: 20150407
  Transmission Date: 20150821
  Serious: Yes (Hospitalization)
  Sender: FDA-Public Use
  Company Number: FR-GE HEALTHCARE MEDICAL DIAGNOSTICS-VISP-PR-1406S-0263

PATIENT
  Age: 57 Year
  Sex: Male

DRUGS (7)
  1. DIFFU K [Concomitant]
     Active Substance: POTASSIUM CHLORIDE
     Dosage: 2 TABLETS X 2 PER DAY
  2. VISIPAQUE [Suspect]
     Active Substance: IODIXANOL
     Indication: PRODUCT USED FOR UNKNOWN INDICATION
     Dosage: DOSE NOT REPORTED
     Route: 022
     Dates: start: 20140506, end: 20140506
  3. BISOCE [Concomitant]
     Active Substance: BISOPROLOL
  4. CORDARONE [Concomitant]
     Active Substance: AMIODARONE HYDROCHLORIDE
     Dosage: 3 TABLETS PER DAY
  5. LASILIX [Concomitant]
     Active Substance: FUROSEMIDE
  6. SINTROM [Concomitant]
     Active Substance: ACENOCOUMAROL
  7. VISIPAQUE [Suspect]
     Active Substance: IODIXANOL
     Indication: DIAGNOSTIC PROCEDURE

REACTIONS (3)
  - Rash maculo-papular [Recovered/Resolved]
  - Arthralgia [Recovered/Resolved]
  - Vascular purpura [Recovered/Resolved]

NARRATIVE: CASE EVENT DATE: 20140510
